FAERS Safety Report 10916302 (Version 1)
Quarter: 2015Q1

REPORT INFORMATION
  Report Type: Spontaneous
  Country: US (occurrence: None)
  Receive Date: 20150311
  Receipt Date: 20150311
  Transmission Date: 20150721
  Serious: No
  Sender: FDA-Public Use
  Company Number: None

PATIENT
  Age: 27 Year
  Sex: Male
  Weight: 86.4 kg

DRUGS (4)
  1. LURASIDONE [Suspect]
     Active Substance: LURASIDONE
     Indication: DEPRESSION
     Dosage: AM
     Route: 048
     Dates: start: 20150218, end: 20150219
  2. QUETIAPINE [Suspect]
     Active Substance: QUETIAPINE
     Indication: PSYCHOTIC DISORDER
     Route: 048
     Dates: start: 20150205, end: 20150219
  3. QUETIAPINE [Suspect]
     Active Substance: QUETIAPINE
     Indication: DEPRESSION
     Route: 048
     Dates: start: 20150205, end: 20150219
  4. LURASIDONE [Suspect]
     Active Substance: LURASIDONE
     Indication: PSYCHOTIC DISORDER
     Dosage: AM
     Route: 048
     Dates: start: 20150218, end: 20150219

REACTIONS (8)
  - Dyskinesia [None]
  - Anxiety [None]
  - Hypersensitivity [None]
  - Dystonia [None]
  - Throat tightness [None]
  - Bruxism [None]
  - Hallucination, auditory [None]
  - Dyspnoea [None]

NARRATIVE: CASE EVENT DATE: 20150219
